FAERS Safety Report 7157621-5 (Version None)
Quarter: 2010Q4

REPORT INFORMATION
  Report Type: 
  Country: None (occurrence: None)
  Receive Date: 20101214
  Receipt Date: 20100304
  Transmission Date: 20110411
  Serious: No
  Sender: FDA-Public Use
  Company Number: US-ASTRAZENECA-2010SE09535

PATIENT
  Age: 632 Month
  Sex: Female
  Weight: 72.6 kg

DRUGS (3)
  1. CRESTOR [Suspect]
     Indication: BLOOD CHOLESTEROL INCREASED
     Route: 048
     Dates: start: 20091101
  2. SYNTHROID [Concomitant]
     Indication: HYPOTHYROIDISM
  3. XANOFLEX [Concomitant]
     Indication: SPINAL FUSION SURGERY

REACTIONS (9)
  - CONSTIPATION [None]
  - COUGH [None]
  - HYPERSENSITIVITY [None]
  - NASAL CONGESTION [None]
  - OROPHARYNGEAL PAIN [None]
  - PYREXIA [None]
  - RHINORRHOEA [None]
  - SNEEZING [None]
  - WEIGHT DECREASED [None]
